FAERS Safety Report 10370814 (Version 1)
Quarter: 2014Q1

REPORT INFORMATION
  Report Type: Spontaneous
  Country: US (occurrence: None)
  Receive Date: 20140306
  Receipt Date: 20140306
  Transmission Date: 20141002
  Serious: Yes (Hospitalization)
  Sender: FDA-Public Use
  Company Number: 163-21880-13010094

PATIENT
  Age: 83 Year
  Sex: Female

DRUGS (24)
  1. REVLIMID [Suspect]
     Indication: MYELODYSPLASTIC SYNDROME
     Route: 048
     Dates: start: 20121214
  2. SYMBICORT (SYMBICORT TURBHALER ^DRACO^) [Concomitant]
     Indication: PRODUCT USED FOR UNKNOWN INDICATION
     Dosage: 160-4.5MCG, 2 PUFF PRN, INH
  3. LYRICA (PREGABALIN) [Concomitant]
     Indication: PRODUCT USED FOR UNKNOWN INDICATION
     Route: 048
  4. LOTREL [Concomitant]
     Indication: PRODUCT USED FOR UNKNOWN INDICATION
  5. ISOSORBIDE DINITRATE [Concomitant]
     Indication: PRODUCT USED FOR UNKNOWN INDICATION
     Route: 048
  6. CYMBALTA [Concomitant]
     Indication: PRODUCT USED FOR UNKNOWN INDICATION
     Route: 048
  7. ATENOLOL [Concomitant]
     Indication: PRODUCT USED FOR UNKNOWN INDICATION
     Route: 048
  8. AMBIEN (ZOLPIDEM TARTRATE) [Concomitant]
     Indication: PRODUCT USED FOR UNKNOWN INDICATION
     Route: 048
  9. AGGRENOX (ASASANTIN) (25 MILLIGRAM, CAPSULES) [Concomitant]
     Indication: THROMBOSIS PROPHYLAXIS
     Route: 048
  10. AGGRENOX (ASASANTIN) (25 MILLIGRAM, CAPSULES) [Concomitant]
     Indication: CEREBROVASCULAR ACCIDENT
     Route: 048
  11. ALPRAZOLAM [Concomitant]
     Indication: PRODUCT USED FOR UNKNOWN INDICATION
     Route: 048
  12. AMLODIPINE BESYLATE (AMLODIPINE BESILATE) (CAPSULES) [Concomitant]
  13. ULTRAM (TRAMADOL HYDROCHLORIDE) [Concomitant]
  14. PROVENTIL HFA (SALBUTAMOL) [Concomitant]
  15. ACETAMINOPHEN (PARACETAMOL) (TABLETS) [Concomitant]
  16. AL HYDRO/MG HYDROX/SIMETHICONE (SIMECO) [Concomitant]
  17. ONDANSETRON HCL [Concomitant]
  18. SODIUM CHLORIDE [Concomitant]
  19. ZALEPLON [Concomitant]
  20. DULOXETINE HCL [Concomitant]
  21. LISINOPRIL [Concomitant]
  22. PANTOPRAZOLE [Concomitant]
  23. FLUTICASONE/SALMETEROL (GALENIC/FLUTICASONE/SALMETEROL/) [Concomitant]
  24. TRAMADOL HCL [Concomitant]

REACTIONS (2)
  - Myocardial infarction [None]
  - Anaemia [None]
